FAERS Safety Report 7531709-9 (Version None)
Quarter: 2011Q2

REPORT INFORMATION
  Report Type: 
  Country: None (occurrence: None)
  Receive Date: 20110608
  Receipt Date: 20110601
  Transmission Date: 20111010
  Serious: Yes (Hospitalization)
  Sender: FDA-Public Use
  Company Number: EG-ROCHE-644166

PATIENT
  Age: 54 Year
  Sex: Male
  Weight: 81.5 kg

DRUGS (4)
  1. PEGINTERFERON ALFA-2A [Suspect]
     Indication: HEPATITIS C
     Route: 058
     Dates: start: 20081118, end: 20090113
  2. INSULIN [Concomitant]
     Dosage: DOSE : 60 UNIT NOT PROVIDED FREQUENCY: DAILY.
     Route: 058
  3. RIBAVIRIN [Suspect]
     Indication: HEPATITIS C
     Route: 048
     Dates: start: 20081118, end: 20090113
  4. METFORMIN HCL [Concomitant]
     Route: 048

REACTIONS (1)
  - CONGESTIVE CARDIOMYOPATHY [None]
